FAERS Safety Report 5381928-5 (Version None)
Quarter: 2007Q3

REPORT INFORMATION
  Report Type: 
  Country: None (occurrence: None)
  Receive Date: 20070709
  Receipt Date: 20070705
  Transmission Date: 20080115
  Serious: Yes (Death, Disabling)
  Sender: FDA-Public Use
  Company Number: US-MERCK-0705USA01740

PATIENT
  Age: 80 Year
  Sex: Female
  Weight: 41 kg

DRUGS (21)
  1. JANUVIA [Suspect]
     Indication: TYPE 2 DIABETES MELLITUS
     Route: 048
     Dates: start: 20070319, end: 20070328
  2. BONIVA [Concomitant]
     Route: 048
  3. CALCIUM CARBONATE AND CHOLECALCIFEROL [Concomitant]
     Route: 048
  4. COLACE [Concomitant]
     Route: 048
  5. COUMADIN [Concomitant]
     Route: 048
  6. FOLIC ACID [Concomitant]
     Route: 048
  7. FERROUS SULFATE [Concomitant]
     Route: 048
  8. LANTUS [Concomitant]
     Route: 058
  9. LASIX [Concomitant]
     Route: 048
     Dates: start: 20070313
  10. LIPITOR [Concomitant]
     Route: 048
  11. LISINOPRIL [Concomitant]
     Route: 048
  12. METFORMIN [Concomitant]
     Route: 048
  13. OMEPRAZOLE [Concomitant]
     Route: 048
  14. RISPERDAL [Concomitant]
     Route: 048
     Dates: end: 20070325
  15. RISPERDAL [Concomitant]
     Route: 048
     Dates: start: 20070326
  16. RISPERDAL [Concomitant]
     Route: 048
     Dates: start: 20070326
  17. TOPROL-XL [Concomitant]
     Route: 048
  18. TYLENOL [Concomitant]
     Route: 048
  19. ULTRAM [Concomitant]
     Route: 048
  20. HALDOL [Concomitant]
     Route: 030
     Dates: start: 20070326, end: 20070326
  21. HALDOL [Concomitant]
     Route: 030
     Dates: start: 20070326

REACTIONS (2)
  - BLOOD GLUCOSE FLUCTUATION [None]
  - DEATH [None]
